FAERS Safety Report 6266976-5 (Version None)
Quarter: 2009Q3

REPORT INFORMATION
  Report Type: 
  Country: None (occurrence: None)
  Receive Date: 20090714
  Receipt Date: 20081210
  Transmission Date: 20100115
  Serious: No
  Sender: FDA-Public Use
  Company Number: GB-AVENTIS-200814529EU

PATIENT
  Age: 36 Year
  Sex: Female
  Weight: 64 kg

DRUGS (3)
  1. ENOXAPARIN SODIUM [Suspect]
     Indication: ANTIPHOSPHOLIPID SYNDROME
     Route: 058
     Dates: start: 20080114, end: 20081003
  2. ASPIRIN [Concomitant]
     Indication: ANTIPHOSPHOLIPID SYNDROME
     Dates: start: 20080114
  3. PROGESTERONE [Concomitant]
     Indication: ANTIPHOSPHOLIPID SYNDROME
     Route: 067
     Dates: start: 20080114

REACTIONS (1)
  - DRUG EXPOSURE DURING PREGNANCY [None]
